FAERS Safety Report 13080124 (Version 3)
Quarter: 2017Q1

REPORT INFORMATION
  Report Type: Report from Study
  Country: KR (occurrence: KR)
  Receive Date: 20170103
  Receipt Date: 20170120
  Transmission Date: 20170428
  Serious: Yes (Other)
  Sender: FDA-Public Use
  Company Number: KR-ASTRAZENECA-2017SE00029

PATIENT
  Age: 766 Month
  Sex: Female

DRUGS (4)
  1. UNASC [Concomitant]
     Indication: HYPERTENSION
     Dates: start: 20160829
  2. TAGRISSO [Suspect]
     Active Substance: OSIMERTINIB
     Indication: NON-SMALL CELL LUNG CANCER
     Route: 048
     Dates: start: 20160822, end: 20161225
  3. OSARTAN [Concomitant]
     Indication: HYPERTENSION
     Dates: start: 20160829
  4. NEWPEX [Concomitant]
     Indication: HYPERLIPIDAEMIA
     Dates: start: 20160829

REACTIONS (1)
  - Dyspnoea [Recovering/Resolving]

NARRATIVE: CASE EVENT DATE: 20161201
